FAERS Safety Report 7619829-1 (Version None)
Quarter: 2011Q3

REPORT INFORMATION
  Report Type: 
  Country: None (occurrence: None)
  Receive Date: 20110719
  Receipt Date: 20110713
  Transmission Date: 20111222
  Serious: Yes (Death)
  Sender: FDA-Public Use
  Company Number: JP-BAYER-201014372BYL

PATIENT
  Age: 68 Year
  Sex: Male
  Weight: 63 kg

DRUGS (7)
  1. GASMOTIN [Concomitant]
     Dosage: TOTAL DAILY DOSE 15 MG
     Dates: start: 20100608, end: 20100805
  2. VOLTAREN [Concomitant]
     Dosage: TOTAL DAILY DOSE 75 MG
     Route: 048
     Dates: start: 20100705, end: 20100729
  3. OXYCONTIN [Concomitant]
     Dosage: TOTAL DAILY DOSE 10 MG
     Route: 048
     Dates: start: 20100730, end: 20100805
  4. NEXAVAR [Suspect]
     Indication: HEPATIC NEOPLASM MALIGNANT
     Dosage: 200 MG, BID
     Route: 048
     Dates: start: 20100720, end: 20100805
  5. MIRIPLATIN [Concomitant]
     Dosage: TOTAL DAILY DOSE 70 MH
     Route: 013
     Dates: start: 20100526
  6. FAMOTIDINE [Concomitant]
     Dosage: TOTAL DAILY DOSE 40 MG
     Route: 048
     Dates: start: 20100608, end: 20100805
  7. PURSENNID [Concomitant]
     Dosage: TOTAL DAILY DOSE 24 MG
     Route: 048
     Dates: start: 20100201, end: 20100805

REACTIONS (1)
  - RESPIRATORY FAILURE [None]
